FAERS Safety Report 22353936 (Version 1)
Quarter: 2023Q2

REPORT INFORMATION
  Report Type: Spontaneous
  Country: US (occurrence: US)
  Receive Date: 20230523
  Receipt Date: 20230523
  Transmission Date: 20230722
  Serious: Yes (Other)
  Sender: FDA-Public Use
  Company Number: US-Accord-301453

PATIENT
  Age: 81 Year
  Sex: Male

DRUGS (27)
  1. LISINOPRIL [Suspect]
     Active Substance: LISINOPRIL
     Indication: Hypertension
     Dates: start: 202301, end: 202304
  2. RELUGOLIX [Suspect]
     Active Substance: RELUGOLIX
     Indication: Prostate cancer
     Dosage: STRENGTH: 120 MG, 360 MILLIGRAM, ONE TIME DOSE
     Route: 048
     Dates: start: 20221201, end: 20221201
  3. CARVEDILOL [Suspect]
     Active Substance: CARVEDILOL
     Indication: Product used for unknown indication
     Route: 048
  4. LYRICA [Concomitant]
     Active Substance: PREGABALIN
  5. FEBUXOSTAT [Concomitant]
     Active Substance: FEBUXOSTAT
  6. NORTRIPTYLINE [Concomitant]
     Active Substance: NORTRIPTYLINE
  7. CALAMINE [Concomitant]
     Active Substance: CALAMINE\FERRIC OXIDE RED\ZINC OXIDE
  8. ZINC OXIDE [Concomitant]
     Active Substance: ZINC OXIDE
  9. PREGABALIN [Concomitant]
     Active Substance: PREGABALIN
  10. ZYRTEC [Concomitant]
     Active Substance: CETIRIZINE HYDROCHLORIDE
  11. MAGNESIUM [Concomitant]
     Active Substance: MAGNESIUM
  12. ZINC [Concomitant]
     Active Substance: ZINC
  13. POTASSIUM [Concomitant]
     Active Substance: POTASSIUM
  14. HERBALS\TURMERIC [Concomitant]
     Active Substance: HERBALS\TURMERIC
  15. NAC [Concomitant]
  16. FISH OIL [Concomitant]
     Active Substance: FISH OIL
  17. LECITHIN [Concomitant]
     Active Substance: LECITHIN
  18. GLYCOLIC ACID [Concomitant]
     Active Substance: GLYCOLIC ACID
  19. FISH OIL\TOCOPHEROL [Concomitant]
     Active Substance: FISH OIL\TOCOPHEROL
  20. IBUPROFEN [Concomitant]
     Active Substance: IBUPROFEN
  21. NAPROXEN [Concomitant]
     Active Substance: NAPROXEN
  22. ACETAMINOPHEN [Concomitant]
     Active Substance: ACETAMINOPHEN
  23. TACROLIMUS [Concomitant]
     Active Substance: TACROLIMUS
  24. LORATADINE [Concomitant]
     Active Substance: LORATADINE
     Dates: start: 202301
  25. TRIAMCINOLONE [Concomitant]
     Active Substance: TRIAMCINOLONE
  26. RELUGOLIX [Suspect]
     Active Substance: RELUGOLIX
     Indication: Prostate cancer
     Dosage: STRENGTH: 120 MG, 120 MILLIGRAM, QD
     Route: 048
     Dates: start: 20221202
  27. RELUGOLIX [Suspect]
     Active Substance: RELUGOLIX
     Indication: Prostate cancer
     Dosage: STRENGTH: 120 MG

REACTIONS (19)
  - Memory impairment [Unknown]
  - Back pain [Unknown]
  - Erythema [Unknown]
  - Gait disturbance [Unknown]
  - Bone pain [Unknown]
  - Depression [Unknown]
  - Asthenia [Not Recovered/Not Resolved]
  - Fatigue [Not Recovered/Not Resolved]
  - Muscle discomfort [Unknown]
  - Lethargy [Unknown]
  - Breast swelling [Unknown]
  - Dermatitis [Not Recovered/Not Resolved]
  - Loss of consciousness [Recovered/Resolved]
  - Hypotension [Recovering/Resolving]
  - Erectile dysfunction [Not Recovered/Not Resolved]
  - Muscle disorder [Unknown]
  - Rash [Unknown]
  - Dyspnoea [Unknown]
  - Arthralgia [Unknown]

NARRATIVE: CASE EVENT DATE: 20230416
